FAERS Safety Report 12809993 (Version 3)
Quarter: 2017Q4

REPORT INFORMATION
  Report Type: Spontaneous
  Country: US (occurrence: US)
  Receive Date: 20161005
  Receipt Date: 20171108
  Transmission Date: 20180320
  Serious: Yes (Other)
  Sender: FDA-Public Use
  Company Number: US-AMGEN-USASP2016134409

PATIENT
  Age: 57 Year
  Sex: Female
  Weight: 95.24 kg

DRUGS (1)
  1. ENBREL [Suspect]
     Active Substance: ETANERCEPT
     Indication: RHEUMATOID ARTHRITIS
     Dosage: 25 MG, TWICE A WEEK
     Route: 058
     Dates: end: 20171101

REACTIONS (8)
  - Ear infection [Unknown]
  - Cystitis [Unknown]
  - Sinusitis [Unknown]
  - Urinary tract infection [Unknown]
  - Kidney infection [Unknown]
  - Rheumatoid arthritis [Unknown]
  - Pneumonia [Unknown]
  - Liver disorder [Unknown]

NARRATIVE: CASE EVENT DATE: 20160914
